FAERS Safety Report 6727497-6 (Version None)
Quarter: 2010Q2

REPORT INFORMATION
  Report Type: 
  Country: None (occurrence: None)
  Receive Date: 20100517
  Receipt Date: 20100510
  Transmission Date: 20101027
  Serious: Yes (Other)
  Sender: FDA-Public Use
  Company Number: US-SANOFI-AVENTIS-A03200904332

PATIENT
  Age: 74 Year
  Sex: Female

DRUGS (6)
  1. DRONEDARONE HCL [Suspect]
     Indication: ATRIAL FIBRILLATION
     Dosage: UNIT DOSE: 400 MG
     Route: 048
     Dates: start: 20090912
  2. HYDROCHLOROTHIAZIDE [Concomitant]
     Route: 065
  3. POTASSIUM [Concomitant]
     Route: 065
  4. MAGNESIUM OXIDE [Concomitant]
     Route: 065
  5. ATACAND [Concomitant]
     Route: 065
  6. COUMADIN [Concomitant]
     Route: 065

REACTIONS (4)
  - ATRIAL FIBRILLATION [None]
  - GINGIVAL ABSCESS [None]
  - INSOMNIA [None]
  - PALPITATIONS [None]
